FAERS Safety Report 12328615 (Version 1)
Quarter: 2016Q2

REPORT INFORMATION
  Report Type: Spontaneous
  Country: US (occurrence: US)
  Receive Date: 20160503
  Receipt Date: 20160503
  Transmission Date: 20160815
  Serious: No
  Sender: FDA-Public Use
  Company Number: US-BEH-2015049608

PATIENT
  Age: 3 Year
  Sex: Male
  Weight: 16.6 kg

DRUGS (16)
  1. DIPHENHYDRAMINE. [Concomitant]
     Active Substance: DIPHENHYDRAMINE
  2. DIASTAT [Concomitant]
     Active Substance: DIAZEPAM
  3. HIZENTRA [Suspect]
     Active Substance: HUMAN IMMUNOGLOBULIN G
     Dosage: 2 GM 10 ML VIAL; 2 GM WEEKLY
     Route: 058
     Dates: start: 20150313
  4. QVAR [Concomitant]
     Active Substance: BECLOMETHASONE DIPROPIONATE
  5. HIZENTRA [Suspect]
     Active Substance: HUMAN IMMUNOGLOBULIN G
     Indication: HYPOGLOBULINAEMIA
     Dosage: 2 GM 10 ML VIAL; 2 GM WEEKLY; DOSING PERIOD 05MAR2015-01APR2015
     Route: 058
  6. HIZENTRA [Suspect]
     Active Substance: HUMAN IMMUNOGLOBULIN G
     Dosage: FIRST DOSE
     Route: 058
     Dates: start: 20150123, end: 20150123
  7. ACETAMINOPHEN. [Concomitant]
     Active Substance: ACETAMINOPHEN
  8. EPIPEN [Concomitant]
     Active Substance: EPINEPHRINE
  9. PROVENTIL [Concomitant]
     Active Substance: ALBUTEROL
  10. HIZENTRA [Suspect]
     Active Substance: HUMAN IMMUNOGLOBULIN G
     Dosage: 2 GM 10 ML VIAL, 2 GM WEEKLY
     Route: 058
     Dates: start: 20150313
  11. CEFDINIR. [Concomitant]
     Active Substance: CEFDINIR
  12. HIZENTRA [Suspect]
     Active Substance: HUMAN IMMUNOGLOBULIN G
     Dosage: 2 GM 10 ML VIAL; 2 GM WEEKLY; DOSING PERIOD 05MAR2015-01APR2015
     Route: 058
  13. HIZENTRA [Suspect]
     Active Substance: HUMAN IMMUNOGLOBULIN G
     Dosage: 2 GM 10 ML VIAL , 2 GM WEEKLY;DOSING PERIOD 05MAR2015-01APR2015
     Route: 058
  14. HIZENTRA [Suspect]
     Active Substance: HUMAN IMMUNOGLOBULIN G
     Dosage: 2 GM 10 ML VIAL; 2 GM WEEKLY
     Route: 058
     Dates: start: 20150313
  15. LIDOCAINE PRILOCAINE [Concomitant]
  16. PROBIOTIC [Concomitant]
     Active Substance: PROBIOTICS NOS

REACTIONS (3)
  - Infusion site swelling [Unknown]
  - Oedema [Unknown]
  - Pruritus [Unknown]

NARRATIVE: CASE EVENT DATE: 20150313
